FAERS Safety Report 25084658 (Version 1)
Quarter: 2025Q1

REPORT INFORMATION
  Report Type: Spontaneous
  Country: AU (occurrence: AU)
  Receive Date: 20250317
  Receipt Date: 20250317
  Transmission Date: 20250408
  Serious: No
  Sender: MERCK SHARP & DOHME LLC
  Company Number: AU-009507513-2261427

PATIENT
  Age: 76 Year
  Sex: Female

DRUGS (1)
  1. LAGEVRIO [Suspect]
     Active Substance: MOLNUPIRAVIR
     Route: 048

REACTIONS (2)
  - Poor quality product administered [Unknown]
  - Product packaging quantity issue [Unknown]
